FAERS Safety Report 20606417 (Version 1)
Quarter: 2022Q1

REPORT INFORMATION
  Report Type: Spontaneous
  Country: US (occurrence: None)
  Receive Date: 20220316
  Receipt Date: 20220316
  Transmission Date: 20220423
  Serious: Yes (Hospitalization)
  Sender: FDA-Public Use
  Company Number: None

PATIENT
  Sex: Female

DRUGS (4)
  1. SIROLIMUS [Suspect]
     Active Substance: SIROLIMUS
     Indication: Immunodeficiency common variable
     Dosage: FREQUENCY : DAILY;?
     Route: 048
     Dates: start: 202007
  2. SIROLIMUS [Suspect]
     Active Substance: SIROLIMUS
     Indication: Primary biliary cholangitis
  3. SIROLIMUS [Suspect]
     Active Substance: SIROLIMUS
     Indication: Systemic lupus erythematosus
  4. SIROLIMUS [Suspect]
     Active Substance: SIROLIMUS
     Indication: Asthma

REACTIONS (1)
  - Hospitalisation [None]
